FAERS Safety Report 6553020-5 (Version None)
Quarter: 2010Q1

REPORT INFORMATION
  Report Type: 
  Country: None (occurrence: None)
  Receive Date: 20100122
  Receipt Date: 20100106
  Transmission Date: 20100710
  Serious: Yes (Other)
  Sender: FDA-Public Use
  Company Number: 2009US001967

PATIENT
  Age: 8 Year
  Sex: Male

DRUGS (7)
  1. TACROLIMUS [Suspect]
     Indication: DERMATITIS ATOPIC
     Dosage: 0.1 %, BID, TOPICAL
     Route: 061
     Dates: start: 20010518
  2. ATARAX [Concomitant]
  3. SINGULAIR [Concomitant]
  4. TOPICORT (TRIAMCINOLONE ACETONIDE) [Concomitant]
  5. ALBUTEROL (SALBUTAMOL SULFATE) [Concomitant]
  6. CUTIVATE (FLUTICASONE PROPIONATE) [Concomitant]
  7. FLUTICASONE PROPIONATE [Concomitant]

REACTIONS (2)
  - ABDOMINAL PAIN [None]
  - BLINDNESS TRANSIENT [None]
